FAERS Safety Report 9891877 (Version 2)
Quarter: 2014Q1

REPORT INFORMATION
  Report Type: Report from Study
  Country: CA (occurrence: CA)
  Receive Date: 20140212
  Receipt Date: 20140221
  Transmission Date: 20141002
  Serious: Yes (Life-Threatening)
  Sender: FDA-Public Use
  Company Number: PHHY2014CA016983

PATIENT
  Sex: Male

DRUGS (5)
  1. CLOZARIL [Suspect]
     Indication: SCHIZOPHRENIA
     Dosage: 275 MG, UNK
     Route: 048
     Dates: start: 19991110
  2. CLOZARIL [Suspect]
     Dosage: 100 MG, UNK
     Route: 048
  3. LUVOX [Concomitant]
     Dosage: 300 MG, UNK
  4. SEROQUEL [Concomitant]
  5. FLUPHENAZINE [Concomitant]

REACTIONS (2)
  - Antipsychotic drug level above therapeutic [Unknown]
  - Electrocardiogram QT prolonged [Unknown]
